FAERS Safety Report 14228019 (Version 1)
Quarter: 2017Q4

REPORT INFORMATION
  Report Type: Report from Study
  Country: US (occurrence: US)
  Receive Date: 20171127
  Receipt Date: 20171127
  Transmission Date: 20180321
  Serious: Yes (Hospitalization)
  Sender: FDA-Public Use
  Company Number: US-ACTELION-A-NJ2017-162645

PATIENT
  Age: 86 Year
  Sex: Female
  Weight: 82.54 kg

DRUGS (9)
  1. TADALAFIL [Concomitant]
     Active Substance: TADALAFIL
     Dosage: 40 MG, QD
     Route: 048
     Dates: start: 20140721
  2. LEVOTHYROXINE. [Concomitant]
     Active Substance: LEVOTHYROXINE
     Dosage: 50 MCG, QD
     Route: 048
     Dates: start: 20170607
  3. DUONEB [Concomitant]
     Active Substance: ALBUTEROL SULFATE\IPRATROPIUM BROMIDE
     Dosage: UNK, PRN
     Dates: start: 20140721
  4. FUROSEMIDE. [Concomitant]
     Active Substance: FUROSEMIDE
     Dosage: 40 M, W, F
     Route: 048
     Dates: start: 20140721
  5. UPTRAVI [Suspect]
     Active Substance: SELEXIPAG
     Indication: PULMONARY ARTERIAL HYPERTENSION
     Dosage: 200 MCG, BID
     Route: 048
     Dates: start: 20171109, end: 20171111
  6. FUROSEMIDE. [Concomitant]
     Active Substance: FUROSEMIDE
     Dosage: 120 MG, UNK
     Route: 048
     Dates: start: 20140721
  7. ELIQUIS [Concomitant]
     Active Substance: APIXABAN
     Dosage: 2.5 MG, BID
     Route: 048
     Dates: start: 20140721
  8. ATORVASTATIN [Concomitant]
     Active Substance: ATORVASTATIN
     Dosage: 20 MG, QD
     Route: 048
     Dates: start: 20140721
  9. AMIODARONE [Concomitant]
     Active Substance: AMIODARONE
     Dosage: 100 MG, QD
     Route: 048
     Dates: start: 20140721

REACTIONS (16)
  - Pain in extremity [Not Recovered/Not Resolved]
  - Drug intolerance [Not Recovered/Not Resolved]
  - Venous pressure jugular increased [Not Recovered/Not Resolved]
  - Rales [Unknown]
  - Hypotension [Not Recovered/Not Resolved]
  - Loss of consciousness [Not Recovered/Not Resolved]
  - Fall [Not Recovered/Not Resolved]
  - Cellulitis [Unknown]
  - Dyspnoea [Recovering/Resolving]
  - Syncope [Recovered/Resolved]
  - Pulmonary arterial hypertension [Not Recovered/Not Resolved]
  - Rash erythematous [Not Recovered/Not Resolved]
  - Wound [Not Recovered/Not Resolved]
  - Wheezing [Not Recovered/Not Resolved]
  - Headache [Not Recovered/Not Resolved]
  - Asthenia [Recovering/Resolving]

NARRATIVE: CASE EVENT DATE: 20171110
